FAERS Safety Report 4382741-8 (Version None)
Quarter: 2004Q2

REPORT INFORMATION
  Report Type: 
  Country: None (occurrence: None)
  Receive Date: 20040617
  Receipt Date: 20040607
  Transmission Date: 20050107
  Serious: Yes (Hospitalization, Disabling, Other)
  Sender: FDA-Public Use
  Company Number: 2004038193

PATIENT
  Age: 38 Year
  Sex: Female
  Weight: 68 kg

DRUGS (6)
  1. NICORETTE [Suspect]
     Indication: SMOKING CESSATION THERAPY
     Dosage: ORAL
     Route: 048
     Dates: start: 20020101
  2. NICORETTE [Suspect]
     Indication: SMOKING CESSATION THERAPY
     Dosage: TRANSDERMAL
     Route: 062
     Dates: start: 20020101
  3. SELEGILINE HYDROCHLORIDE (SELEGILINE HYDROCHLORIDE) [Concomitant]
  4. SINEMET [Concomitant]
  5. PARACETAMOL (PARACETAMOL) [Concomitant]
  6. ZOPICLONE (ZOPICLONE) [Concomitant]

REACTIONS (17)
  - AMNESIA [None]
  - ASTHENIA [None]
  - BACK PAIN [None]
  - DEPRESSED LEVEL OF CONSCIOUSNESS [None]
  - DRUG TOXICITY [None]
  - GASTRITIS [None]
  - GENERAL PHYSICAL HEALTH DETERIORATION [None]
  - HYPOKALAEMIA [None]
  - ILEUS PARALYTIC [None]
  - LISTLESS [None]
  - MALNUTRITION [None]
  - OESOPHAGEAL CANDIDIASIS [None]
  - POLYNEUROPATHY [None]
  - STRESS SYMPTOMS [None]
  - WEIGHT DECREASED [None]
  - WERNICKE'S ENCEPHALOPATHY [None]
  - WHEELCHAIR USER [None]
